FAERS Safety Report 11858501 (Version 2)
Quarter: 2016Q1

REPORT INFORMATION
  Report Type: Spontaneous
  Country: FR (occurrence: FR)
  Receive Date: 20151222
  Receipt Date: 20160106
  Transmission Date: 20160526
  Serious: Yes (Hospitalization, Other)
  Sender: FDA-Public Use
  Company Number: FR-JAZZ-2015-FR-020554

PATIENT

DRUGS (11)
  1. VINCRISTINE [Suspect]
     Active Substance: VINCRISTINE
     Dosage: UNK UNK, SINGLE
     Dates: start: 20151102, end: 20151102
  2. METHOTREXATE [Suspect]
     Active Substance: METHOTREXATE
     Dosage: 12 MG, UNK
     Route: 037
     Dates: start: 20151013
  3. METHOTREXATE [Suspect]
     Active Substance: METHOTREXATE
     Dosage: 152 MG, (76MG 2 IN 1 CYCLE)
     Route: 042
     Dates: start: 20151022, end: 20151022
  4. METHOTREXATE [Suspect]
     Active Substance: METHOTREXATE
     Dosage: UNK UNK, SINGLE
     Route: 042
     Dates: start: 20151102, end: 20151102
  5. VINCRISTINE [Suspect]
     Active Substance: VINCRISTINE
     Indication: PRECURSOR B-LYMPHOBLASTIC LYMPHOMA
     Dosage: 2.28 MG, (1.14 MF, 2 IN 1 CYCLE)
     Route: 042
     Dates: start: 20151012, end: 20151012
  6. ERWINASE [Suspect]
     Active Substance: ASPARAGINASE ERWINIA CHRYSANTHEMI
     Indication: PRECURSOR B-LYMPHOBLASTIC LYMPHOMA
     Dosage: 2 INJECTIONS
     Route: 030
     Dates: start: 20151021, end: 20151021
  7. METHOTREXATE [Suspect]
     Active Substance: METHOTREXATE
     Dosage: UNK UNK, SINGLE
     Route: 042
     Dates: start: 20151112, end: 20151112
  8. VINCRISTINE [Suspect]
     Active Substance: VINCRISTINE
     Dosage: 2.18 MG, (1.14 MF, 2 IN 1 CYCLE)
     Route: 042
     Dates: start: 20151022, end: 20151022
  9. VINCRISTINE [Suspect]
     Active Substance: VINCRISTINE
     Dosage: UNK UNK, SINGLE
     Dates: start: 20151112, end: 20151112
  10. ERWINASE [Suspect]
     Active Substance: ASPARAGINASE ERWINIA CHRYSANTHEMI
     Dosage: 9500 IU, SINGLE
     Route: 030
     Dates: start: 20151103, end: 20151103
  11. METHOTREXATE [Suspect]
     Active Substance: METHOTREXATE
     Indication: PRECURSOR B-LYMPHOBLASTIC LYMPHOMA
     Dosage: 152 MG,  (76MG 2 IN 1 CYCLE)
     Route: 042
     Dates: start: 20151012, end: 20151012

REACTIONS (2)
  - Hepatocellular injury [Recovered/Resolved]
  - Hypersensitivity [Recovered/Resolved]

NARRATIVE: CASE EVENT DATE: 20151026
